FAERS Safety Report 14110182 (Version 1)
Quarter: 2017Q4

REPORT INFORMATION
  Report Type: Report from Study
  Country: GB (occurrence: GB)
  Receive Date: 20171020
  Receipt Date: 20171020
  Transmission Date: 20180321
  Serious: Yes (Other)
  Sender: FDA-Public Use
  Company Number: GB-AMGEN-GBRSL2017157646

PATIENT
  Age: 59 Year
  Sex: Female

DRUGS (2)
  1. ARANESP [Suspect]
     Active Substance: DARBEPOETIN ALFA
     Indication: PRODUCT USED FOR UNKNOWN INDICATION
     Dosage: 20 MCG, UNK
     Route: 065
  2. EPO [Concomitant]
     Active Substance: ERYTHROPOIETIN

REACTIONS (3)
  - Haemoglobin increased [Unknown]
  - Thrombosis [Unknown]
  - Haemodialysis [Unknown]

NARRATIVE: CASE EVENT DATE: 201706
